FAERS Safety Report 10059913 (Version 1)
Quarter: 2014Q2

REPORT INFORMATION
  Report Type: Spontaneous
  Country: CO (occurrence: CO)
  Receive Date: 20140404
  Receipt Date: 20140404
  Transmission Date: 20141212
  Serious: Yes (Other)
  Sender: FDA-Public Use
  Company Number: CO-GLAXOSMITHKLINE-A1068052A

PATIENT
  Age: 84 Year
  Sex: Male

DRUGS (1)
  1. REVOLADE [Suspect]
     Indication: IMMUNE THROMBOCYTOPENIC PURPURA
     Dosage: 50MG PER DAY
     Route: 048
     Dates: start: 201109, end: 201403

REACTIONS (1)
  - Fibrosis [Not Recovered/Not Resolved]
